FAERS Safety Report 20011020 (Version 2)
Quarter: 2021Q4

REPORT INFORMATION
  Report Type: Spontaneous
  Country: FR (occurrence: FR)
  Receive Date: 20211029
  Receipt Date: 20211112
  Transmission Date: 20220303
  Serious: Yes (Other)
  Sender: FDA-Public Use
  Company Number: FR-TEVA-2021-FR-1970803

PATIENT
  Age: 63 Year
  Sex: Female

DRUGS (2)
  1. DIAZEPAM [Suspect]
     Active Substance: DIAZEPAM
     Indication: Back pain
     Dosage: 7.5 MILLIGRAM DAILY; FOUR YEARS AGO
     Route: 065
  2. DIAZEPAM [Suspect]
     Active Substance: DIAZEPAM
     Indication: Feeling of relaxation

REACTIONS (8)
  - Amyotrophy [Unknown]
  - Gait inability [Unknown]
  - Muscle disorder [Unknown]
  - Back pain [Unknown]
  - Product use in unapproved indication [Unknown]
  - Intervertebral disc protrusion [Unknown]
  - Fall [Unknown]
  - Product substitution issue [Unknown]

NARRATIVE: CASE EVENT DATE: 20200101
